FAERS Safety Report 23093608 (Version 1)
Quarter: 2023Q4

REPORT INFORMATION
  Report Type: Spontaneous
  Country: CN (occurrence: CN)
  Receive Date: 20231023
  Receipt Date: 20231023
  Transmission Date: 20240110
  Serious: Yes (Hospitalization)
  Sender: FDA-Public Use
  Company Number: CN-ABBVIE-5456966

PATIENT
  Age: 59 Year
  Sex: Male
  Weight: 65 kg

DRUGS (5)
  1. VENETOCLAX [Suspect]
     Active Substance: VENETOCLAX
     Indication: Acute leukaemia
     Dosage: DAY 2?FORM STRENGTH 100 MILLIGRAMS?2 TABLET
     Route: 048
     Dates: start: 20231015, end: 20231015
  2. VENETOCLAX [Suspect]
     Active Substance: VENETOCLAX
     Indication: Acute leukaemia
     Dosage: DAY 1?FORM STRENGTH 100 MILLIGRAMS?1 TABLET
     Route: 048
     Dates: start: 20231014, end: 20231014
  3. VENETOCLAX [Suspect]
     Active Substance: VENETOCLAX
     Indication: Acute leukaemia
     Dosage: DAY 3 TO DAY 28?FORM STRENGTH 100 MILLIGRAMS?4 TABLET
     Route: 048
     Dates: start: 20231016, end: 20231017
  4. AZACITIDINE [Concomitant]
     Active Substance: AZACITIDINE
     Indication: Product used for unknown indication
     Dosage: DAY 7
  5. AZACITIDINE [Concomitant]
     Active Substance: AZACITIDINE
     Indication: Product used for unknown indication
     Dosage: DAY 1 TO DAY 6

REACTIONS (2)
  - Myelosuppression [Recovering/Resolving]
  - Acute myeloid leukaemia [Unknown]

NARRATIVE: CASE EVENT DATE: 20231001
